FAERS Safety Report 9848663 (Version 1)
Quarter: 2014Q1

REPORT INFORMATION
  Report Type: Report from Study
  Country: CA (occurrence: CA)
  Receive Date: 20140128
  Receipt Date: 20140128
  Transmission Date: 20141002
  Serious: Yes (Other)
  Sender: FDA-Public Use
  Company Number: CA-ROCHE-1336310

PATIENT
  Age: 72 Year
  Sex: Female
  Weight: 70 kg

DRUGS (13)
  1. RITUXAN [Suspect]
     Indication: ANTI-NEUTROPHIL CYTOPLASMIC ANTIBODY POSITIVE VASCULITIS
     Dosage: WEEKLY X 4
     Route: 042
     Dates: start: 20130807
  2. DIPHENHYDRAMINE HCL [Concomitant]
     Indication: PREMEDICATION
     Route: 048
     Dates: start: 20130807
  3. ACETAMINOPHEN [Concomitant]
     Indication: PREMEDICATION
     Route: 048
     Dates: start: 20130807
  4. METHYLPREDNISOLONE [Concomitant]
     Indication: PREMEDICATION
     Route: 042
     Dates: start: 20130807
  5. PREDNISONE [Concomitant]
     Route: 065
  6. PREDNISONE [Concomitant]
     Route: 065
     Dates: start: 20130703
  7. PREDNISONE [Concomitant]
     Route: 065
     Dates: start: 201312
  8. LIPITOR [Concomitant]
     Route: 065
  9. LEVOTHYROXINE [Concomitant]
     Route: 065
  10. SPIRIVA [Concomitant]
  11. ADVAIR DISKUS [Concomitant]
  12. VENTOLIN [Concomitant]
     Route: 065
  13. IMURAN [Concomitant]

REACTIONS (2)
  - Osteonecrosis [Not Recovered/Not Resolved]
  - Off label use [Unknown]
